FAERS Safety Report 9649106 (Version 3)
Quarter: 2013Q4

REPORT INFORMATION
  Report Type: Report from Study
  Country: JP (occurrence: JP)
  Receive Date: 20131028
  Receipt Date: 20131203
  Transmission Date: 20140711
  Serious: Yes (Death, Other)
  Sender: FDA-Public Use
  Company Number: JP-TAKEDA-2013TJP002164

PATIENT
  Age: 79 Year
  Sex: Female

DRUGS (7)
  1. LANSOPRAZOLE [Suspect]
     Indication: PROPHYLAXIS AGAINST GASTROINTESTINAL ULCER
     Dosage: 15 MG, QD
     Route: 048
     Dates: start: 20101130, end: 20101212
  2. BAYASPIRIN [Concomitant]
     Indication: THROMBOSIS PROPHYLAXIS
     Dosage: 100 MG,1 DAYS
     Route: 048
     Dates: start: 20101130, end: 20101212
  3. PLAVIX [Concomitant]
     Dosage: 75 MG, 1 DAYS
     Route: 048
     Dates: start: 20101130, end: 20101212
  4. TANATRIL [Concomitant]
     Dosage: 5 MG, 1 DAYS
     Route: 048
     Dates: end: 20101212
  5. CONIEL [Concomitant]
     Dosage: 8 MG,1 DAYS
     Route: 048
     Dates: start: 20101130, end: 20101212
  6. SIGMART [Concomitant]
     Indication: ANGINA PECTORIS
     Dosage: 15 MG, 1 DAYS
     Route: 048
     Dates: start: 20101112, end: 20101212
  7. LIVALO [Concomitant]
     Dosage: 2 MG, 1 DAYS
     Route: 048
     Dates: end: 20101212

REACTIONS (1)
  - Cerebral haemorrhage [Fatal]
